FAERS Safety Report 8454735-4 (Version None)
Quarter: 2012Q2

REPORT INFORMATION
  Report Type: 
  Country: None (occurrence: None)
  Receive Date: 20120614
  Receipt Date: 20120529
  Transmission Date: 20120825
  Serious: Yes (Other)
  Sender: FDA-Public Use
  Company Number: FK201201538

PATIENT
  Sex: Female

DRUGS (7)
  1. DOXORUBICIN (MANUFACTURER UNKNOWN) (DOXORUBICIN) [Suspect]
     Indication: RHABDOMYOSARCOMA
  2. CYCLOPHOSPHAMIDE [Suspect]
     Indication: RHABDOMYOSARCOMA
  3. DACTINOMYCIN [Suspect]
     Indication: RHABDOMYOSARCOMA
  4. ETOPOSIDE [Suspect]
     Indication: RHABDOMYOSARCOMA
  5. IRINOTECAN HCL [Suspect]
     Indication: RHABDOMYOSARCOMA
  6. IFOSFAMIDE [Suspect]
     Indication: RHABDOMYOSARCOMA
  7. VINCRISTINE [Suspect]
     Indication: RHABDOMYOSARCOMA

REACTIONS (6)
  - MATERNAL EXPOSURE DURING PREGNANCY [None]
  - AMENORRHOEA [None]
  - PREMATURE MENOPAUSE [None]
  - RHABDOMYOSARCOMA [None]
  - CAESAREAN SECTION [None]
  - NEOPLASM RECURRENCE [None]
